FAERS Safety Report 6440074-X (Version None)
Quarter: 2009Q4

REPORT INFORMATION
  Report Type: 
  Country: None (occurrence: None)
  Receive Date: 20091113
  Receipt Date: 20091105
  Transmission Date: 20100525
  Serious: Yes (Hospitalization)
  Sender: FDA-Public Use
  Company Number: US-JNJFOC-20091102368

PATIENT
  Sex: Male
  Weight: 64.4 kg

DRUGS (6)
  1. INFLIXIMAB [Suspect]
     Indication: INFLAMMATORY BOWEL DISEASE
     Route: 042
  2. 5-AMINOSALICYLIC ACID [Concomitant]
     Route: 048
  3. ANTIBIOTICS UNSPECIFIED [Concomitant]
     Indication: INFLAMMATORY BOWEL DISEASE
  4. PREDNISONE [Concomitant]
  5. PRILOSEC [Concomitant]
  6. MERCAPTOPURINE [Concomitant]

REACTIONS (1)
  - CROHN'S DISEASE [None]
